FAERS Safety Report 11915890 (Version 1)
Quarter: 2016Q1

REPORT INFORMATION
  Report Type: Spontaneous
  Country: US (occurrence: None)
  Receive Date: 20160113
  Receipt Date: 20160113
  Transmission Date: 20160526
  Serious: Yes (Hospitalization)
  Sender: FDA-Public Use
  Company Number: None

PATIENT
  Age: 85 Year
  Sex: Female

DRUGS (1)
  1. TICAGRELOR [Suspect]
     Active Substance: TICAGRELOR
     Indication: POSTOPERATIVE CARE
     Route: 048
     Dates: start: 20151217, end: 20151226

REACTIONS (2)
  - Gastrointestinal haemorrhage [None]
  - Anaemia [None]

NARRATIVE: CASE EVENT DATE: 20151225
